FAERS Safety Report 7427842-2 (Version None)
Quarter: 2011Q2

REPORT INFORMATION
  Report Type: 
  Country: None (occurrence: None)
  Receive Date: 20110413
  Receipt Date: 20110329
  Transmission Date: 20111010
  Serious: Yes (Other)
  Sender: FDA-Public Use
  Company Number: FK201100572

PATIENT
  Age: 58 Year
  Sex: Female

DRUGS (2)
  1. METHYLPREDNISOLONE SODIUM SUCCINATE [Suspect]
     Indication: STEROID THERAPY
     Dosage: ONE DOSE, INTRAVENOUS
     Route: 042
  2. PREDNISONE [Concomitant]

REACTIONS (5)
  - SPINAL CORD DISORDER [None]
  - CONDITION AGGRAVATED [None]
  - GAIT DISTURBANCE [None]
  - DURAL FISTULA [None]
  - MUSCULAR WEAKNESS [None]
